FAERS Safety Report 5569129-9 (Version None)
Quarter: 2007Q4

REPORT INFORMATION
  Report Type: 
  Country: None (occurrence: None)
  Receive Date: 20071220
  Receipt Date: 20070731
  Transmission Date: 20080405
  Serious: No
  Sender: FDA-Public Use
  Company Number: A0666062A

PATIENT
  Age: 73 Year
  Sex: Male

DRUGS (6)
  1. AVODART [Suspect]
     Indication: BENIGN PROSTATIC HYPERPLASIA
     Dosage: .5MG PER DAY
     Route: 048
  2. OMEPRAZOLE [Concomitant]
  3. BENICAR [Concomitant]
  4. NORVASC [Concomitant]
  5. SIMVASTATIN [Concomitant]
  6. ASPIRIN [Concomitant]

REACTIONS (2)
  - ABDOMINAL PAIN UPPER [None]
  - MUSCLE SPASMS [None]
